FAERS Safety Report 9880951 (Version 1)
Quarter: 2014Q1

REPORT INFORMATION
  Report Type: Spontaneous
  Country: IT (occurrence: None)
  Receive Date: 20140205
  Receipt Date: 20140205
  Transmission Date: 20141002
  Serious: Yes (Life-Threatening, Hospitalization)
  Sender: FDA-Public Use
  Company Number: DAV-AE-LOR-14-01

PATIENT
  Age: 40 Year
  Sex: Male
  Weight: 110 kg

DRUGS (6)
  1. LORAZEPAM [Suspect]
     Indication: SUICIDE ATTEMPT
  2. PHENOBARBITAL [Concomitant]
  3. RISPERIDONE [Concomitant]
  4. CLOTIAZEPAM [Concomitant]
  5. BISOPROLOL [Concomitant]
  6. OLANZAPINE [Concomitant]

REACTIONS (5)
  - Coma [None]
  - Suicide attempt [None]
  - Respiratory acidosis [None]
  - Electrocardiogram ST segment elevation [None]
  - Ventricular hypokinesia [None]
